FAERS Safety Report 7934701-5 (Version None)
Quarter: 2011Q4

REPORT INFORMATION
  Report Type: 
  Country: None (occurrence: None)
  Receive Date: 20111118
  Receipt Date: 20111116
  Transmission Date: 20120403
  Serious: Yes (Other)
  Sender: FDA-Public Use
  Company Number: 126626

PATIENT
  Sex: Male

DRUGS (1)
  1. ACETYLCYSTEINE [Suspect]
     Dosage: 600MG AS REQUIRED

REACTIONS (2)
  - PRODUCT TASTE ABNORMAL [None]
  - MYOCARDIAL INFARCTION [None]
